FAERS Safety Report 14857977 (Version 1)
Quarter: 2018Q2

REPORT INFORMATION
  Report Type: Spontaneous
  Country: TW (occurrence: TW)
  Receive Date: 20180508
  Receipt Date: 20180508
  Transmission Date: 20180711
  Serious: Yes (Death, Hospitalization, Other)
  Sender: FDA-Public Use
  Company Number: TW-ASTELLAS-2018US021661

PATIENT
  Age: 91 Year
  Sex: Male

DRUGS (31)
  1. TAMIFLU [Concomitant]
     Active Substance: OSELTAMIVIR PHOSPHATE
     Indication: PRODUCT USED FOR UNKNOWN INDICATION
     Dosage: 75 MG, STAT
     Route: 048
     Dates: start: 20180407, end: 20180408
  2. TAMIFLU [Concomitant]
     Active Substance: OSELTAMIVIR PHOSPHATE
     Dosage: 75 MG, QDCC
     Route: 048
     Dates: start: 20180407, end: 20180412
  3. CRAVIT [Concomitant]
     Active Substance: LEVOFLOXACIN
     Indication: PRODUCT USED FOR UNKNOWN INDICATION
     Dosage: 750 MG, STAT
     Route: 042
     Dates: start: 20180403, end: 20180404
  4. SOLU-CORTEF [Concomitant]
     Active Substance: HYDROCORTISONE SODIUM SUCCINATE
     Dosage: 200 MG, EVERY 6 HOURS
     Route: 042
     Dates: start: 20180408, end: 20180412
  5. DIFLUCAN [Concomitant]
     Active Substance: FLUCONAZOLE
     Dosage: 200 MG STAT
     Route: 042
     Dates: start: 20180412, end: 20180413
  6. HERBESSER [Concomitant]
     Active Substance: DILTIAZEM HYDROCHLORIDE
     Indication: PRODUCT USED FOR UNKNOWN INDICATION
     Dosage: 90 MG, Q8HV
     Route: 048
     Dates: start: 20180407, end: 20180408
  7. FINIBAX [Concomitant]
     Active Substance: DORIPENEM MONOHYDRATE
     Dosage: 750, EVERY 8 HOURS
     Route: 042
     Dates: start: 20180405, end: 20180413
  8. CRAVIT [Concomitant]
     Active Substance: LEVOFLOXACIN
     Route: 042
     Dates: start: 20180403, end: 20180404
  9. CRAVIT [Concomitant]
     Active Substance: LEVOFLOXACIN
     Dosage: 750 MG, EVERY OTHER DAY
     Route: 042
     Dates: start: 20180404, end: 20180408
  10. FLUIMUCIL A [Concomitant]
     Indication: PRODUCT USED FOR UNKNOWN INDICATION
     Dosage: 600 MG, TWICE DAILY
     Route: 048
     Dates: start: 20180403, end: 20180403
  11. SOLU-CORTEF [Concomitant]
     Active Substance: HYDROCORTISONE SODIUM SUCCINATE
     Indication: PRODUCT USED FOR UNKNOWN INDICATION
     Dosage: 100 MG, STAT UNKNOWN FREQ.
     Route: 042
     Dates: start: 20180403, end: 20180403
  12. HERBESSER [Concomitant]
     Active Substance: DILTIAZEM HYDROCHLORIDE
     Indication: PRODUCT USED FOR UNKNOWN INDICATION
     Dosage: 20 MG, STAT
     Route: 042
     Dates: start: 20180407, end: 20180412
  13. HERBESSER [Concomitant]
     Active Substance: DILTIAZEM HYDROCHLORIDE
     Dosage: 20 MG, STAT
     Route: 042
     Dates: start: 20180407, end: 20180412
  14. XTANDI [Suspect]
     Active Substance: ENZALUTAMIDE
     Indication: PROSTATE CANCER
     Route: 048
     Dates: start: 20171104, end: 20180408
  15. COMBIVENT [Concomitant]
     Active Substance: ALBUTEROL SULFATE\IPRATROPIUM BROMIDE
     Indication: PRODUCT USED FOR UNKNOWN INDICATION
     Dosage: 4 VIAL (DAILY DOSE), 4 TIMES DAILY
     Route: 042
     Dates: start: 20180407, end: 20180412
  16. TARGOCID [Concomitant]
     Active Substance: TEICOPLANIN
     Route: 042
     Dates: start: 20180406, end: 20180413
  17. HERBESSER [Concomitant]
     Active Substance: DILTIAZEM HYDROCHLORIDE
     Dosage: 120 MG, Q6HV
     Route: 048
     Dates: start: 20180407, end: 20180408
  18. SMECTA [Concomitant]
     Active Substance: MONTMORILLONITE
     Indication: PRODUCT USED FOR UNKNOWN INDICATION
     Dosage: 3 WP, TIDAC
     Route: 048
     Dates: start: 20180407, end: 20180409
  19. NEXIUM [Concomitant]
     Active Substance: ESOMEPRAZOLE MAGNESIUM
     Indication: PRODUCT USED FOR UNKNOWN INDICATION
     Dosage: 40 MG QDAC
     Route: 048
     Dates: start: 20180407, end: 20180413
  20. EVAC [Concomitant]
     Indication: PRODUCT USED FOR UNKNOWN INDICATION
     Dosage: 1 BOT QDPRN
     Route: 065
     Dates: start: 20180405, end: 20180407
  21. FLUMARIN                           /00963302/ [Concomitant]
     Active Substance: FLOMOXEF SODIUM
     Dosage: 6000 MG , EVERY 8 HOURS
     Route: 042
     Dates: start: 20180403, end: 20180405
  22. FLUIMUCIL A [Concomitant]
     Dosage: 120 MG, TWICE DAILY
     Route: 048
     Dates: start: 20180403, end: 20180413
  23. SOLU-CORTEF [Concomitant]
     Active Substance: HYDROCORTISONE SODIUM SUCCINATE
     Dosage: 200 MG, STAT
     Route: 042
     Dates: start: 20180407, end: 20180408
  24. FINIBAX [Concomitant]
     Active Substance: DORIPENEM MONOHYDRATE
     Indication: PRODUCT USED FOR UNKNOWN INDICATION
     Dosage: 250 MG STAT
     Route: 042
     Dates: start: 20180405, end: 20180406
  25. DIFLUCAN [Concomitant]
     Active Substance: FLUCONAZOLE
     Indication: PRODUCT USED FOR UNKNOWN INDICATION
     Dosage: 200 MG, ST
     Route: 042
     Dates: start: 20180408, end: 20180409
  26. DIFLUCAN [Concomitant]
     Active Substance: FLUCONAZOLE
     Route: 042
     Dates: start: 20180408, end: 20180413
  27. LASIX [Concomitant]
     Active Substance: FUROSEMIDE
     Dosage: 2 AMP, TWICE DAILY
     Route: 042
     Dates: start: 20180409, end: 20180413
  28. SMECTA [Concomitant]
     Active Substance: MONTMORILLONITE
     Dosage: 3 WP, TIDPRN
     Route: 048
     Dates: start: 20180409, end: 20180411
  29. FLUMARIN                           /00963302/ [Concomitant]
     Active Substance: FLOMOXEF SODIUM
     Indication: PRODUCT USED FOR UNKNOWN INDICATION
     Dosage: 2000 MG, STAT
     Route: 042
     Dates: start: 20180403, end: 20180404
  30. LASIX [Concomitant]
     Active Substance: FUROSEMIDE
     Indication: PRODUCT USED FOR UNKNOWN INDICATION
     Dosage: 1 AMP STAT
     Route: 042
     Dates: start: 20180405, end: 20180406
  31. TARGOCID [Concomitant]
     Active Substance: TEICOPLANIN
     Indication: PRODUCT USED FOR UNKNOWN INDICATION
     Dosage: 400 MG STAT
     Route: 042
     Dates: start: 20180405, end: 20180406

REACTIONS (5)
  - Pyrexia [Unknown]
  - Respiratory failure [Fatal]
  - Pneumonia [Fatal]
  - Hypokalaemia [Unknown]
  - Septic shock [Recovering/Resolving]

NARRATIVE: CASE EVENT DATE: 201804
